FAERS Safety Report 6312760-3 (Version None)
Quarter: 2009Q3

REPORT INFORMATION
  Report Type: 
  Country: None (occurrence: None)
  Receive Date: 20090818
  Receipt Date: 20090811
  Transmission Date: 20100115
  Serious: Yes (Hospitalization, Other)
  Sender: FDA-Public Use
  Company Number: GB-WYE-G04231909

PATIENT
  Age: 51 Year
  Sex: Female
  Weight: 102.96 kg

DRUGS (12)
  1. IBUPROFEN [Suspect]
     Indication: PAIN
     Route: 048
     Dates: start: 20060301
  2. RISPERIDONE [Suspect]
     Indication: SCHIZOAFFECTIVE DISORDER
     Route: 048
     Dates: start: 20070730
  3. FRUSEMIDE [Suspect]
     Indication: JOINT SWELLING
     Dosage: 20MG (FREQUNCY UNSPECIFIED)
     Route: 048
     Dates: start: 20060901, end: 20090709
  4. DIHYDROCODEINE TARTRATE [Concomitant]
     Dosage: UNKNOWN
  5. VALPROATE SODIUM [Concomitant]
     Dosage: UNKNOWN
  6. LACTULOSE [Concomitant]
     Dosage: UNKNOWN
  7. LANSOPRAZOLE [Concomitant]
     Dosage: UNKNOWN
  8. MAXEPA [Concomitant]
     Dosage: UNKNOWN
  9. NULYTELY [Concomitant]
     Dosage: UNKNOWN
  10. PARACETAMOL [Concomitant]
     Dosage: UNKNOWN
  11. AMITRIPTYLINE HYDROCHLORIDE [Suspect]
     Indication: DEPRESSION
     Route: 048
     Dates: start: 20051101
  12. FYBOGEL [Concomitant]
     Dosage: UNKNOWN

REACTIONS (2)
  - BLOOD SODIUM DECREASED [None]
  - BURNING SENSATION [None]
